FAERS Safety Report 8134452-0 (Version None)
Quarter: 2012Q1

REPORT INFORMATION
  Report Type: 
  Country: None (occurrence: None)
  Receive Date: 20120214
  Receipt Date: 20120214
  Transmission Date: 20120608
  Serious: Yes (Life-Threatening, Other)
  Sender: FDA-Public Use
  Company Number: None

PATIENT
  Sex: Female

DRUGS (1)
  1. VENTOLIN HFA [Suspect]
     Indication: MULTIPLE ALLERGIES
     Dosage: 2 INHALTIONS
     Dates: start: 20120201, end: 20120211

REACTIONS (12)
  - SCREAMING [None]
  - FEELING COLD [None]
  - SINUS HEADACHE [None]
  - NAUSEA [None]
  - DIZZINESS [None]
  - VISUAL IMPAIRMENT [None]
  - OROPHARYNGEAL PAIN [None]
  - PAIN [None]
  - MYDRIASIS [None]
  - TREMOR [None]
  - EYE PAIN [None]
  - EYE MOVEMENT DISORDER [None]
